FAERS Safety Report 7878723-1 (Version None)
Quarter: 2011Q4

REPORT INFORMATION
  Report Type: 
  Country: None (occurrence: None)
  Receive Date: 20111101
  Receipt Date: 20111020
  Transmission Date: 20120403
  Serious: Yes (Hospitalization, Other)
  Sender: FDA-Public Use
  Company Number: US-BAYER-2011-013074

PATIENT
  Age: 42 Year
  Sex: Female
  Weight: 98 kg

DRUGS (17)
  1. PAXIL [Concomitant]
     Dosage: 60 MG, UNK
     Route: 048
  2. EPIPEN [Concomitant]
  3. FLUOXETINE HCL [Concomitant]
     Dosage: 60 MG, UNK
     Route: 048
  4. PROGESTIN INJ [Concomitant]
     Dosage: UNK
     Dates: start: 20090501
  5. YAZ [Suspect]
     Indication: MUSCLE SPASMS
  6. YAZ [Suspect]
     Indication: VAGINAL HAEMORRHAGE
  7. ADVAIR DISKUS 100/50 [Concomitant]
     Indication: ASTHMA
     Dosage: 1 DF, BID
     Route: 055
  8. YAZ [Suspect]
     Indication: CONTRACEPTION
     Dosage: UNK
     Dates: start: 20090301, end: 20090401
  9. CLONAZEPAM [Concomitant]
     Dosage: 0.5 MG, TID
     Route: 048
  10. LYRICA [Concomitant]
  11. MEGESTROL ACETATE [Concomitant]
     Dosage: UNK
     Dates: start: 20090501
  12. ALBUTEROL INHALER [Concomitant]
     Indication: ASTHMA
     Dosage: 2 PUFF(S), PRN
     Route: 048
  13. DICLOFENAC SODIUM [Concomitant]
  14. TRAZODONE HYDROCHLORIDE [Concomitant]
     Dosage: 100 MG, HS
     Route: 048
  15. MEGACE [Concomitant]
     Dosage: UNK UNK, BID
  16. VALIUM [Concomitant]
  17. ALBUTEROL [Concomitant]
     Dosage: 2 DF, Q4HR
     Route: 055

REACTIONS (3)
  - INJURY [None]
  - DEEP VEIN THROMBOSIS [None]
  - PAIN [None]
